FAERS Safety Report 13170861 (Version 1)
Quarter: 2017Q1

REPORT INFORMATION
  Report Type: Spontaneous
  Country: US (occurrence: US)
  Receive Date: 20170201
  Receipt Date: 20170201
  Transmission Date: 20170428
  Serious: Yes (Hospitalization)
  Sender: FDA-Public Use
  Company Number: US-TEVA-697869USA

PATIENT
  Age: 82 Year
  Sex: Male

DRUGS (89)
  1. LISINOPRIL. [Concomitant]
     Active Substance: LISINOPRIL
     Dates: start: 20130222, end: 20150608
  2. CARVEDILOL. [Concomitant]
     Active Substance: CARVEDILOL
     Dates: start: 20141006, end: 20150727
  3. SAW PALMETTO [Concomitant]
     Active Substance: SAW PALMETTO
     Dates: start: 20130222, end: 20150608
  4. FUROSEMIDE. [Concomitant]
     Active Substance: FUROSEMIDE
     Dates: start: 201503
  5. FUROSEMIDE. [Concomitant]
     Active Substance: FUROSEMIDE
     Dates: start: 201503, end: 20150608
  6. VITAMIN B12 [Concomitant]
     Active Substance: CYANOCOBALAMIN
     Dates: start: 20130222, end: 20150608
  7. VITAMIN D3 [Concomitant]
     Active Substance: CHOLECALCIFEROL
     Dates: start: 2010
  8. GLUCOSAMINE W/CHONDROITIN SULFATE [Concomitant]
     Active Substance: CHONDROITIN SULFATE (BOVINE)\GLUCOSAMINE SULFATE
     Dates: start: 201503, end: 20150608
  9. SUPER B COMPLEX [Concomitant]
     Active Substance: CYANOCOBALAMIN\DEXPANTHENOL\NIACINAMIDE\PYRIDOXINE HYDROCHLORIDE\RIBOFLAVIN 5^-PHOSPHATE SODIUM\THIAMINE HYDROCHLORIDE\VITAMIN B COMPLEX
     Dates: start: 201404, end: 20150607
  10. MAGNESIUM [Concomitant]
     Active Substance: MAGNESIUM
     Dates: start: 201503, end: 20150608
  11. PRESERVISION [Concomitant]
     Active Substance: MINERALS\VITAMINS
     Dates: start: 201503, end: 20150608
  12. NAPROXEN. [Concomitant]
     Active Substance: NAPROXEN
     Indication: OSTEOARTHRITIS
     Dates: start: 20120905, end: 20121025
  13. FUROSEMIDE. [Concomitant]
     Active Substance: FUROSEMIDE
     Dates: start: 201404, end: 20150607
  14. VITAMIN D3 [Concomitant]
     Active Substance: CHOLECALCIFEROL
     Dates: start: 20130222, end: 20150608
  15. GLUCOSAMINE W/CHONDROITIN SULFATE [Concomitant]
     Active Substance: CHONDROITIN SULFATE (BOVINE)\GLUCOSAMINE SULFATE
     Dates: start: 20140605, end: 201510
  16. MAGNESIUM [Concomitant]
     Active Substance: MAGNESIUM
     Dates: start: 20130222, end: 20150608
  17. PREDNISONE. [Suspect]
     Active Substance: PREDNISONE
     Indication: OSTEOARTHRITIS
     Dosage: 10 MILLIGRAM DAILY;
     Route: 048
     Dates: start: 20150316, end: 20150608
  18. NEXIUM [Concomitant]
     Active Substance: ESOMEPRAZOLE MAGNESIUM
     Dates: start: 20120210, end: 20121025
  19. OMEGA-3 ACIDS [Concomitant]
     Active Substance: OMEGA-3 FATTY ACIDS
     Dates: start: 201010
  20. IRON [Concomitant]
     Active Substance: IRON
     Dates: start: 20140605, end: 201510
  21. AMIODARONE [Concomitant]
     Active Substance: AMIODARONE
     Dates: start: 20150501, end: 201507
  22. VITAMIN B12 [Concomitant]
     Active Substance: CYANOCOBALAMIN
     Dates: start: 201503, end: 20150608
  23. VITAMIN D3 [Concomitant]
     Active Substance: CHOLECALCIFEROL
     Dates: start: 20140605, end: 201510
  24. GLUCOSAMINE W/CHONDROITIN SULFATE [Concomitant]
     Active Substance: CHONDROITIN SULFATE (BOVINE)\GLUCOSAMINE SULFATE
     Dates: start: 201404, end: 20150607
  25. SUPER B COMPLEX [Concomitant]
     Active Substance: CYANOCOBALAMIN\DEXPANTHENOL\NIACINAMIDE\PYRIDOXINE HYDROCHLORIDE\RIBOFLAVIN 5^-PHOSPHATE SODIUM\THIAMINE HYDROCHLORIDE\VITAMIN B COMPLEX
     Dates: start: 2010
  26. SOOTHE [Concomitant]
     Active Substance: BISMUTH SUBSALICYLATE\GLYCERIN\PROPYLENE GLYCOL
     Dates: start: 20130222, end: 20150608
  27. SOOTHE [Concomitant]
     Active Substance: BISMUTH SUBSALICYLATE\GLYCERIN\PROPYLENE GLYCOL
     Dates: start: 201503, end: 20150608
  28. IBUPROFEN. [Suspect]
     Active Substance: IBUPROFEN
     Indication: RHEUMATOID ARTHRITIS
     Route: 048
     Dates: start: 20120112, end: 20150608
  29. MELOXICAM. [Suspect]
     Active Substance: MELOXICAM
     Indication: OSTEOARTHRITIS
     Dosage: 15 MILLIGRAM DAILY;
     Route: 048
     Dates: start: 20150313, end: 20150608
  30. FLAXSEED [Concomitant]
     Active Substance: FLAX SEED
     Dates: start: 201010
  31. IRON [Concomitant]
     Active Substance: IRON
     Dates: start: 20130222, end: 20150608
  32. VITAMIN B12 [Concomitant]
     Active Substance: CYANOCOBALAMIN
     Dates: start: 20140605, end: 201510
  33. SUPER B COMPLEX [Concomitant]
     Active Substance: CYANOCOBALAMIN\DEXPANTHENOL\NIACINAMIDE\PYRIDOXINE HYDROCHLORIDE\RIBOFLAVIN 5^-PHOSPHATE SODIUM\THIAMINE HYDROCHLORIDE\VITAMIN B COMPLEX
     Dates: start: 20140605, end: 201510
  34. MAGNESIUM [Concomitant]
     Active Substance: MAGNESIUM
     Dates: start: 20140605, end: 201510
  35. SOOTHE [Concomitant]
     Active Substance: BISMUTH SUBSALICYLATE\GLYCERIN\PROPYLENE GLYCOL
     Dates: start: 201404, end: 20150607
  36. SOOTHE [Concomitant]
     Active Substance: BISMUTH SUBSALICYLATE\GLYCERIN\PROPYLENE GLYCOL
     Dates: start: 20150508, end: 201507
  37. IBUPROFEN. [Suspect]
     Active Substance: IBUPROFEN
     Indication: OSTEOARTHRITIS
  38. DILTIAZEM. [Concomitant]
     Active Substance: DILTIAZEM
     Dates: start: 20110913, end: 20150608
  39. SAW PALMETTO [Concomitant]
     Active Substance: SAW PALMETTO
     Dates: start: 20140605, end: 201510
  40. AMIODARONE [Concomitant]
     Active Substance: AMIODARONE
     Dates: start: 201404, end: 20150607
  41. VITAMIN B12 [Concomitant]
     Active Substance: CYANOCOBALAMIN
     Dates: start: 2010
  42. MAGNESIUM [Concomitant]
     Active Substance: MAGNESIUM
     Dates: start: 20150508, end: 201507
  43. SOOTHE [Concomitant]
     Active Substance: BISMUTH SUBSALICYLATE\GLYCERIN\PROPYLENE GLYCOL
     Dates: start: 20140605, end: 201510
  44. PRESERVISION [Concomitant]
     Active Substance: MINERALS\VITAMINS
     Dates: start: 201404, end: 20150607
  45. CELECOXIB. [Concomitant]
     Active Substance: CELECOXIB
     Indication: OSTEOARTHRITIS
     Route: 048
     Dates: start: 20120905, end: 20121025
  46. PREDNISONE. [Suspect]
     Active Substance: PREDNISONE
     Indication: RHEUMATOID ARTHRITIS
     Dosage: 10 MILLIGRAM DAILY;
     Route: 048
     Dates: start: 20150824, end: 20151031
  47. PARACETAMOL [Concomitant]
     Active Substance: ACETAMINOPHEN
     Dates: start: 20110727
  48. ACYCLOVIR. [Concomitant]
     Active Substance: ACYCLOVIR
     Dates: start: 1996
  49. CYMBALTA [Concomitant]
     Active Substance: DULOXETINE HYDROCHLORIDE
     Dates: start: 20140605, end: 201510
  50. CYMBALTA [Concomitant]
     Active Substance: DULOXETINE HYDROCHLORIDE
     Dates: start: 20130222, end: 20150608
  51. CARVEDILOL. [Concomitant]
     Active Substance: CARVEDILOL
     Dates: start: 20130222, end: 20150608
  52. CARVEDILOL. [Concomitant]
     Active Substance: CARVEDILOL
     Dates: start: 20140605, end: 201510
  53. SAW PALMETTO [Concomitant]
     Active Substance: SAW PALMETTO
     Dates: start: 201412
  54. AMIODARONE [Concomitant]
     Active Substance: AMIODARONE
     Dates: start: 20150508, end: 201507
  55. FUROSEMIDE. [Concomitant]
     Active Substance: FUROSEMIDE
     Dates: start: 20130222, end: 20150608
  56. FUROSEMIDE. [Concomitant]
     Active Substance: FUROSEMIDE
     Dates: start: 20150508, end: 201507
  57. VITAMIN D3 [Concomitant]
     Active Substance: CHOLECALCIFEROL
     Dates: start: 201404, end: 20150607
  58. VITAMIN D3 [Concomitant]
     Active Substance: CHOLECALCIFEROL
     Dates: start: 201503, end: 20150608
  59. GLUCOSAMINE W/CHONDROITIN SULFATE [Concomitant]
     Active Substance: CHONDROITIN SULFATE (BOVINE)\GLUCOSAMINE SULFATE
     Dates: start: 2010
  60. GLUCOSAMINE W/CHONDROITIN SULFATE [Concomitant]
     Active Substance: CHONDROITIN SULFATE (BOVINE)\GLUCOSAMINE SULFATE
     Dates: start: 20130222, end: 20150608
  61. MAGNESIUM [Concomitant]
     Active Substance: MAGNESIUM
     Dates: start: 201404, end: 20150607
  62. SOOTHE [Concomitant]
     Active Substance: BISMUTH SUBSALICYLATE\GLYCERIN\PROPYLENE GLYCOL
     Dates: start: 201408
  63. PRESERVISION [Concomitant]
     Active Substance: MINERALS\VITAMINS
     Dates: start: 201411
  64. PRESERVISION [Concomitant]
     Active Substance: MINERALS\VITAMINS
     Dates: start: 20130222, end: 20150608
  65. PRESERVISION [Concomitant]
     Active Substance: MINERALS\VITAMINS
     Dates: start: 20150508, end: 201507
  66. ASPIRIN. [Suspect]
     Active Substance: ASPIRIN
     Indication: CARDIOVASCULAR EVENT PROPHYLAXIS
     Dosage: 81 MILLIGRAM DAILY;
     Route: 048
     Dates: start: 20000207, end: 20150608
  67. COENZYME Q10 [Concomitant]
     Active Substance: UBIDECARENONE
     Dates: start: 201010
  68. LISINOPRIL. [Concomitant]
     Active Substance: LISINOPRIL
     Dates: start: 20120625, end: 201510
  69. TAMULOSIN [Concomitant]
     Active Substance: TAMSULOSIN
     Dates: start: 20131003
  70. AMIODARONE [Concomitant]
     Active Substance: AMIODARONE
     Dates: start: 20130222, end: 20150608
  71. AMIODARONE [Concomitant]
     Active Substance: AMIODARONE
     Dates: start: 20140605, end: 201510
  72. VITAMIN B12 [Concomitant]
     Active Substance: CYANOCOBALAMIN
     Dates: start: 20150508, end: 201507
  73. VITAMIN D3 [Concomitant]
     Active Substance: CHOLECALCIFEROL
     Dates: start: 20150508, end: 201507
  74. PRESERVISION [Concomitant]
     Active Substance: MINERALS\VITAMINS
     Dates: start: 20140605, end: 201510
  75. CELECOXIB. [Concomitant]
     Active Substance: CELECOXIB
     Indication: RHEUMATOID ARTHRITIS
  76. LORTAB [Concomitant]
     Active Substance: ACETAMINOPHEN\HYDROCODONE BITARTRATE
  77. CALCIUM [Concomitant]
     Active Substance: CALCIUM
     Dates: start: 201010
  78. CYMBALTA [Concomitant]
     Active Substance: DULOXETINE HYDROCHLORIDE
     Dates: start: 20140605, end: 201510
  79. IRON [Concomitant]
     Active Substance: IRON
     Dates: start: 201404, end: 20150607
  80. IRON [Concomitant]
     Active Substance: IRON
     Dates: start: 201404, end: 20150607
  81. AMIODARONE [Concomitant]
     Active Substance: AMIODARONE
     Dates: start: 201503, end: 20150608
  82. FUROSEMIDE. [Concomitant]
     Active Substance: FUROSEMIDE
     Dates: start: 20140605, end: 201510
  83. VITAMIN B12 [Concomitant]
     Active Substance: CYANOCOBALAMIN
     Dates: start: 201404, end: 20150607
  84. GLUCOSAMINE W/CHONDROITIN SULFATE [Concomitant]
     Active Substance: CHONDROITIN SULFATE (BOVINE)\GLUCOSAMINE SULFATE
     Dates: start: 20150508, end: 201507
  85. SUPER B COMPLEX [Concomitant]
     Active Substance: CYANOCOBALAMIN\DEXPANTHENOL\NIACINAMIDE\PYRIDOXINE HYDROCHLORIDE\RIBOFLAVIN 5^-PHOSPHATE SODIUM\THIAMINE HYDROCHLORIDE\VITAMIN B COMPLEX
     Dates: start: 20130222, end: 20150608
  86. SUPER B COMPLEX [Concomitant]
     Active Substance: CYANOCOBALAMIN\DEXPANTHENOL\NIACINAMIDE\PYRIDOXINE HYDROCHLORIDE\RIBOFLAVIN 5^-PHOSPHATE SODIUM\THIAMINE HYDROCHLORIDE\VITAMIN B COMPLEX
     Dates: start: 201503, end: 20150608
  87. SUPER B COMPLEX [Concomitant]
     Active Substance: CYANOCOBALAMIN\DEXPANTHENOL\NIACINAMIDE\PYRIDOXINE HYDROCHLORIDE\RIBOFLAVIN 5^-PHOSPHATE SODIUM\THIAMINE HYDROCHLORIDE\VITAMIN B COMPLEX
     Dates: start: 20150508, end: 201507
  88. MAGNESIUM [Concomitant]
     Active Substance: MAGNESIUM
     Dates: start: 2010
  89. NAPROXEN. [Concomitant]
     Active Substance: NAPROXEN
     Indication: RHEUMATOID ARTHRITIS

REACTIONS (3)
  - Iron deficiency anaemia [Not Recovered/Not Resolved]
  - Shock haemorrhagic [Recovered/Resolved]
  - Gastroduodenal haemorrhage [Not Recovered/Not Resolved]

NARRATIVE: CASE EVENT DATE: 20150608
